FAERS Safety Report 10534715 (Version 2)
Quarter: 2014Q4

REPORT INFORMATION
  Report Type: Report from Study
  Country: JP (occurrence: JP)
  Receive Date: 20141022
  Receipt Date: 20141022
  Transmission Date: 20150529
  Serious: Yes (Other)
  Sender: FDA-Public Use
  Company Number: JP-EISAI MEDICAL RESEARCH-E2020-12348-CLI-JP

PATIENT
  Age: 87 Year
  Sex: Female
  Weight: 39.8 kg

DRUGS (11)
  1. MAGNESIUM OXIDE. [Concomitant]
     Active Substance: MAGNESIUM OXIDE
     Indication: CONSTIPATION
     Route: 048
     Dates: start: 20120530
  2. DONEPEZIL [Suspect]
     Active Substance: DONEPEZIL
     Indication: DEMENTIA ALZHEIMER^S TYPE
     Route: 048
     Dates: start: 20120822, end: 201209
  3. SOKEIKKETSUTO [Concomitant]
     Indication: BACK PAIN
     Route: 048
     Dates: start: 20081125
  4. SHINLUCK [Concomitant]
     Indication: CONSTIPATION
     Route: 048
     Dates: start: 20111222
  5. STAYBLA [Concomitant]
     Active Substance: IMIDAFENACIN
     Indication: POLLAKIURIA
     Route: 048
     Dates: start: 20110427
  6. SUZUTOLON [Concomitant]
     Indication: DIZZINESS
     Route: 048
     Dates: start: 20080606
  7. AM [Concomitant]
     Indication: DYSPEPSIA
     Route: 048
     Dates: start: 20080606
  8. ROZEREM [Concomitant]
     Active Substance: RAMELTEON
     Indication: INSOMNIA
     Route: 048
     Dates: start: 20120130, end: 20130515
  9. HANGEBYAKUJUTSUTEM MATO [Concomitant]
     Indication: DIZZINESS
     Route: 048
     Dates: start: 20080606
  10. VASOLAN [Concomitant]
     Active Substance: VERAPAMIL HYDROCHLORIDE
     Indication: SUPRAVENTRICULAR TACHYCARDIA
     Route: 048
     Dates: start: 20100528
  11. DONEPEZIL [Suspect]
     Active Substance: DONEPEZIL
     Route: 048
     Dates: start: 201209, end: 20130516

REACTIONS (1)
  - Aspiration [Recovered/Resolved]

NARRATIVE: CASE EVENT DATE: 20130516
